FAERS Safety Report 19657511 (Version 1)
Quarter: 2021Q3

REPORT INFORMATION
  Report Type: Spontaneous
  Country: GB (occurrence: GB)
  Receive Date: 20210804
  Receipt Date: 20210804
  Transmission Date: 20211014
  Serious: Yes (Hospitalization)
  Sender: FDA-Public Use
  Company Number: GB-JNJFOC-20210759945

PATIENT
  Age: 48 Year
  Sex: Male

DRUGS (9)
  1. RAMIPRIL. [Concomitant]
     Active Substance: RAMIPRIL
     Route: 048
     Dates: start: 20200131
  2. FEXOFENADINE [Concomitant]
     Active Substance: FEXOFENADINE HYDROCHLORIDE
     Route: 048
     Dates: start: 20181011, end: 20210723
  3. BUDESONIDE. [Concomitant]
     Active Substance: BUDESONIDE
     Route: 048
  4. VENLAFAXINE [Concomitant]
     Active Substance: VENLAFAXINE HYDROCHLORIDE
     Dosage: 75MG IN THE MORNING
     Route: 048
     Dates: start: 20200825
  5. BUDESONIDE. [Concomitant]
     Active Substance: BUDESONIDE
     Dosage: A REDUCING REGIME.
     Route: 048
     Dates: start: 20210513
  6. VENLAFAXINE [Concomitant]
     Active Substance: VENLAFAXINE HYDROCHLORIDE
     Dosage: 37.5MG MORNING AND NIGHT
     Route: 048
     Dates: start: 20200203
  7. REMICADE [Suspect]
     Active Substance: INFLIXIMAB
     Indication: CROHN^S DISEASE
     Dosage: SECOND LOADING DOSE. 5MG/KG DOSE
     Route: 042
     Dates: start: 20210616, end: 20210616
  8. GLICLAZIDE [Concomitant]
     Active Substance: GLICLAZIDE
     Route: 048
     Dates: start: 20181011
  9. AZATHIOPRINE. [Concomitant]
     Active Substance: AZATHIOPRINE
     Route: 048
     Dates: start: 20210513

REACTIONS (2)
  - Infusion related reaction [Recovered/Resolved]
  - Presyncope [Recovered/Resolved]

NARRATIVE: CASE EVENT DATE: 20210716
